FAERS Safety Report 8058856-X (Version None)
Quarter: 2012Q1

REPORT INFORMATION
  Report Type: 
  Country: None (occurrence: None)
  Receive Date: 20120120
  Receipt Date: 20111207
  Transmission Date: 20120608
  Serious: Yes (Hospitalization)
  Sender: FDA-Public Use
  Company Number: US-BRISTOL-MYERS SQUIBB COMPANY-16223026

PATIENT
  Age: 59 Year
  Sex: Male

DRUGS (1)
  1. YERVOY [Suspect]
     Indication: METASTATIC MALIGNANT MELANOMA
     Dosage: ALSO 3MG/KG
     Route: 042
     Dates: start: 20111013, end: 20111013

REACTIONS (1)
  - LARGE INTESTINE PERFORATION [None]
